FAERS Safety Report 22657565 (Version 1)
Quarter: 2023Q2

REPORT INFORMATION
  Report Type: Spontaneous
  Country: US (occurrence: US)
  Receive Date: 20230630
  Receipt Date: 20230630
  Transmission Date: 20230722
  Serious: No
  Sender: FDA-Public Use
  Company Number: US-Accord-308640

PATIENT

DRUGS (2)
  1. CLONAZEPAM [Suspect]
     Active Substance: CLONAZEPAM
     Indication: Product used for unknown indication
     Dates: start: 201804
  2. CLONAZEPAM [Suspect]
     Active Substance: CLONAZEPAM
     Indication: Product used for unknown indication
     Dates: start: 20181026

REACTIONS (5)
  - Drug ineffective [Unknown]
  - Feeling abnormal [Recovered/Resolved]
  - Illness [Unknown]
  - Fatigue [Unknown]
  - Product substitution issue [Unknown]
